FAERS Safety Report 4784890-9 (Version None)
Quarter: 2005Q3

REPORT INFORMATION
  Report Type: 
  Country: None (occurrence: None)
  Receive Date: 20050930
  Receipt Date: 20050920
  Transmission Date: 20060218
  Serious: Yes (Hospitalization)
  Sender: FDA-Public Use
  Company Number: PHHO2005JP14913

PATIENT
  Age: 74 Year
  Sex: Female
  Weight: 50 kg

DRUGS (6)
  1. DIOVAN [Suspect]
     Indication: HYPERTENSION
     Route: 048
     Dates: start: 20030417
  2. LIPOVAS [Concomitant]
     Indication: HYPERCHOLESTEROLAEMIA
     Dosage: 5 MG, UNK
     Route: 048
     Dates: start: 20030417
  3. EUGLUCON [Concomitant]
     Indication: DIABETES MELLITUS
     Dosage: 8.75 MG, UNK
     Route: 048
     Dates: start: 20030417, end: 20040515
  4. BASEN [Concomitant]
     Indication: DIABETES MELLITUS
     Dosage: 0.6 MG, UNK
     Route: 048
     Dates: start: 20030417
  5. ASPIRIN [Concomitant]
     Dosage: 100 MG, UNK
     Route: 048
     Dates: start: 20030417
  6. GASTER [Concomitant]
     Indication: DUODENITIS
     Dosage: 40 MG, UNK
     Route: 048
     Dates: start: 20030417

REACTIONS (1)
  - DIABETES MELLITUS INADEQUATE CONTROL [None]
